FAERS Safety Report 7006685-8 (Version None)
Quarter: 2010Q3

REPORT INFORMATION
  Report Type: 
  Country: None (occurrence: None)
  Receive Date: 20100921
  Receipt Date: 20100624
  Transmission Date: 20110219
  Serious: Yes (Death, Hospitalization)
  Sender: FDA-Public Use
  Company Number: PHHO2010AU04164

PATIENT
  Sex: Female

DRUGS (9)
  1. AFINITOR [Suspect]
     Indication: BILE DUCT CANCER
     Dosage: 10MG/DAY
     Route: 048
     Dates: start: 20100302, end: 20100501
  2. OXYCODONE HCL [Concomitant]
  3. OXYCONTIN [Concomitant]
  4. VITAMIN D [Concomitant]
  5. NEXIUM [Concomitant]
  6. SLOW-K [Concomitant]
  7. MAXOLON [Concomitant]
  8. LACTULOSE [Concomitant]
  9. PANADOL [Suspect]

REACTIONS (13)
  - ABDOMINAL DISTENSION [None]
  - ABDOMINAL PAIN [None]
  - ASCITES [None]
  - BACK PAIN [None]
  - CONSTIPATION [None]
  - DEVICE OCCLUSION [None]
  - GASTROINTESTINAL OEDEMA [None]
  - GENERAL PHYSICAL HEALTH DETERIORATION [None]
  - ILEUS [None]
  - MALIGNANT NEOPLASM PROGRESSION [None]
  - RECTAL TUBE INSERTION [None]
  - SMALL INTESTINAL OBSTRUCTION [None]
  - VOMITING [None]
